FAERS Safety Report 20090772 (Version 1)
Quarter: 2021Q4

REPORT INFORMATION
  Report Type: Spontaneous
  Country: US (occurrence: US)
  Receive Date: 20211119
  Receipt Date: 20211119
  Transmission Date: 20220303
  Serious: Yes (Other)
  Sender: FDA-Public Use
  Company Number: US-drreddys-SPO/USA/21/0143883

PATIENT
  Age: 25 Year
  Sex: Female

DRUGS (1)
  1. ZENATANE [Suspect]
     Active Substance: ISOTRETINOIN
     Indication: Product used for unknown indication
     Dosage: RMA ISSUE DATE: 10 MAY 2021 6:22:11 PM, 10 JUNE 2021 6:19:27 PM, 12 JULY 2021 5:06:36 PM, 14 AUGUST

REACTIONS (2)
  - Emotional disorder [Recovering/Resolving]
  - Crying [Recovering/Resolving]
